FAERS Safety Report 16999380 (Version 3)
Quarter: 2019Q4

REPORT INFORMATION
  Report Type: Spontaneous
  Country: MX (occurrence: MX)
  Receive Date: 20191106
  Receipt Date: 20191206
  Transmission Date: 20200122
  Serious: Yes (Death, Hospitalization)
  Sender: FDA-Public Use
  Company Number: MX-TEVA-2019-MX-1132165

PATIENT
  Age: 5 Decade
  Sex: Female

DRUGS (7)
  1. CISPLATIN. [Suspect]
     Active Substance: CISPLATIN
     Indication: OVARIAN CANCER
     Dosage: HYPERTHERMAL INTRAPERITONEAL CHEMOTHERAPY
     Route: 065
     Dates: start: 201605
  2. CARBOXIPLATIN (CARBOPLATIN) [Suspect]
     Active Substance: CARBOPLATIN
     Indication: OVARIAN CANCER
     Dosage: RECEIVED 6 CYCLES AND THEN 3 ADDITIONAL CYCLES
     Route: 065
  3. BEVACIZUMAB. [Suspect]
     Active Substance: BEVACIZUMAB
     Indication: OVARIAN CANCER
     Dosage: RECEIVED 3 CYCLES
     Route: 065
  4. DOXORUBICIN LIPOSOMAL [Suspect]
     Active Substance: DOXORUBICIN
     Indication: OVARIAN CANCER
     Dosage: RECEIVED 3 CYCLES
     Route: 065
  5. MITOMYCIN C [Suspect]
     Active Substance: MITOMYCIN
     Indication: OVARIAN CANCER
     Dosage: HYPERTHERMAL INTRAPERITONEAL CHEMOTHERAPY
     Route: 065
     Dates: start: 201605
  6. PACLITAXEL. [Suspect]
     Active Substance: PACLITAXEL
     Indication: OVARIAN CANCER
     Dosage: RECEIVED 6 CYCLES
     Route: 065
  7. DOCETAXEL. [Suspect]
     Active Substance: DOCETAXEL
     Indication: OVARIAN CANCER
     Route: 065

REACTIONS (4)
  - Intestinal perforation [Recovered/Resolved]
  - Ileus paralytic [Fatal]
  - Bone marrow failure [Fatal]
  - Hypotension [Fatal]

NARRATIVE: CASE EVENT DATE: 2016
